FAERS Safety Report 5796492-6 (Version None)
Quarter: 2008Q3

REPORT INFORMATION
  Report Type: 
  Country: None (occurrence: None)
  Receive Date: 20080701
  Receipt Date: 20080625
  Transmission Date: 20090109
  Serious: Yes (Hospitalization, Congenital Anomaly)
  Sender: FDA-Public Use
  Company Number: A0690845A

PATIENT
  Sex: Female
  Weight: 2.3 kg

DRUGS (7)
  1. PAXIL [Suspect]
     Indication: DEPRESSION
     Dates: start: 19990101, end: 20040101
  2. VITAMIN TAB [Concomitant]
     Dates: start: 20040101
  3. WELLBUTRIN [Concomitant]
  4. PROVIGIL [Concomitant]
  5. SEROQUEL [Concomitant]
  6. LEXAPRO [Concomitant]
  7. ALCOHOL [Concomitant]

REACTIONS (7)
  - DRUG EXPOSURE DURING PREGNANCY [None]
  - FALLOT'S TETRALOGY [None]
  - OXYGEN SATURATION DECREASED [None]
  - PATENT DUCTUS ARTERIOSUS [None]
  - PREMATURE BABY [None]
  - PULMONARY VALVE STENOSIS [None]
  - TRISOMY 21 [None]
